FAERS Safety Report 20629061 (Version 1)
Quarter: 2022Q1

REPORT INFORMATION
  Report Type: Other
  Country: CN (occurrence: CN)
  Receive Date: 20220323
  Receipt Date: 20220323
  Transmission Date: 20220423
  Serious: Yes (Life-Threatening)
  Sender: FDA-Public Use
  Company Number: CN-GE HEALTHCARE-2022CSU001948

PATIENT
  Age: 56 Year
  Sex: Female
  Weight: 65 kg

DRUGS (2)
  1. OMNISCAN [Suspect]
     Active Substance: GADODIAMIDE
     Indication: Magnetic resonance imaging abdominal
     Dosage: 15 ML, SINGLE
     Route: 042
     Dates: start: 20220316, end: 20220316
  2. OMNISCAN [Suspect]
     Active Substance: GADODIAMIDE
     Indication: Product used for unknown indication

REACTIONS (4)
  - Hypotension [Recovering/Resolving]
  - Anaphylactic shock [Recovering/Resolving]
  - Dizziness [Recovering/Resolving]
  - Vomiting [Recovering/Resolving]

NARRATIVE: CASE EVENT DATE: 20220316
